FAERS Safety Report 9238549 (Version 2)
Quarter: 2013Q2

REPORT INFORMATION
  Report Type: Not Available
  Country: CN (occurrence: CN)
  Receive Date: 20130418
  Receipt Date: 20130423
  Transmission Date: 20140414
  Serious: Yes (Hospitalization, Other)
  Sender: FDA-Public Use
  Company Number: CN-ASTELLAS-2013JP005074

PATIENT
  Sex: Male
  Weight: 79 kg

DRUGS (7)
  1. TACROLIMUS [Suspect]
     Indication: LIVER TRANSPLANT
     Dosage: UNK
     Route: 048
     Dates: start: 20091230
  2. TACROLIMUS [Suspect]
     Dosage: 0.5 MG, BID
     Route: 048
     Dates: start: 20110115, end: 20120709
  3. MYCOPHENOLATE MOFETIL [Concomitant]
     Route: 065
  4. PREDNISONE [Concomitant]
     Route: 065
  5. MYCOPHENOLATE MOFETIL [Concomitant]
     Route: 048
  6. RIFAMPICIN [Concomitant]
     Dosage: UNK
     Route: 048
     Dates: end: 201006
  7. ISONIAZIDE [Concomitant]
     Route: 065

REACTIONS (7)
  - Drug ineffective [Unknown]
  - Liver transplant rejection [Not Recovered/Not Resolved]
  - Drug level increased [Not Recovered/Not Resolved]
  - Toxicity to various agents [Not Recovered/Not Resolved]
  - Blood bilirubin increased [Not Recovered/Not Resolved]
  - Bone tuberculosis [Not Recovered/Not Resolved]
  - Liver disorder [Not Recovered/Not Resolved]
